FAERS Safety Report 4572854-X (Version None)
Quarter: 2005Q1

REPORT INFORMATION
  Report Type: 
  Country: None (occurrence: None)
  Receive Date: 20050208
  Receipt Date: 20040712
  Transmission Date: 20050727
  Serious: No
  Sender: FDA-Public Use
  Company Number: US-GLAXOSMITHKLINE-A0517820A

PATIENT
  Sex: Female

DRUGS (2)
  1. PAXIL [Suspect]
     Indication: PANIC ATTACK
     Route: 048
     Dates: start: 20010101
  2. PAXIL CR [Suspect]
     Indication: PANIC REACTION
     Dosage: 25MG UNKNOWN
     Route: 048

REACTIONS (6)
  - ANXIETY [None]
  - DRUG WITHDRAWAL SYNDROME [None]
  - ELECTRIC SHOCK [None]
  - PANIC ATTACK [None]
  - PARAESTHESIA [None]
  - VERTIGO [None]
